FAERS Safety Report 4933520-1 (Version None)
Quarter: 2006Q1

REPORT INFORMATION
  Report Type: 
  Country: None (occurrence: None)
  Receive Date: 20060106
  Receipt Date: 20051021
  Transmission Date: 20060701
  Serious: No
  Sender: FDA-Public Use
  Company Number: 200511359BWH

PATIENT
  Age: 58 Year
  Sex: Male

DRUGS (6)
  1. LEVITRA [Suspect]
     Dosage: 20 MG, HS, ORAL
     Route: 048
     Dates: start: 20050701, end: 20050901
  2. LEVITRA [Suspect]
     Dosage: 20 MG, HS, ORAL
     Route: 048
     Dates: start: 20050905
  3. LEVITRA [Suspect]
     Dosage: 20 MG, OW, ORAL
     Route: 048
     Dates: start: 20050912
  4. ZANTAC [Concomitant]
  5. LORATADINE [Concomitant]
  6. ASPIRIN [Concomitant]

REACTIONS (5)
  - HEADACHE [None]
  - MYALGIA [None]
  - OVERDOSE [None]
  - RESTLESS LEGS SYNDROME [None]
  - RESTLESSNESS [None]
